FAERS Safety Report 9531951 (Version 3)
Quarter: 2014Q3

REPORT INFORMATION
  Report Type: Spontaneous
  Country: US (occurrence: US)
  Receive Date: 20130918
  Receipt Date: 20140805
  Transmission Date: 20150326
  Serious: Yes (Hospitalization)
  Sender: FDA-Public Use
  Company Number: US-BAYER-2013-112604

PATIENT
  Age: 24 Year
  Sex: Female
  Weight: 77.1 kg

DRUGS (1)
  1. MIRENA [Suspect]
     Active Substance: LEVONORGESTREL
     Indication: CONTRACEPTION
     Dosage: 20 MCG/24HR, CONT
     Route: 015
     Dates: start: 20101110, end: 20110819

REACTIONS (6)
  - Psychological trauma [None]
  - Pain [None]
  - Uterine perforation [None]
  - Emotional distress [None]
  - Injury [None]
  - General physical health deterioration [None]
